FAERS Safety Report 9304849 (Version 1)
Quarter: 2013Q2

REPORT INFORMATION
  Report Type: Spontaneous
  Country: US (occurrence: None)
  Receive Date: 20130521
  Receipt Date: 20130521
  Transmission Date: 20140414
  Serious: Yes (Disabling, Other)
  Sender: FDA-Public Use
  Company Number: None

PATIENT
  Age: 30 Year
  Sex: Male
  Weight: 90.72 kg

DRUGS (1)
  1. DALFAMPRIDINE [Suspect]
     Indication: MULTIPLE SCLEROSIS
     Dosage: ONE TABLET, 2X DAILY, PO
     Route: 048
     Dates: start: 20130506, end: 20130520

REACTIONS (3)
  - Abnormal dreams [None]
  - Insomnia [None]
  - Fatigue [None]
